FAERS Safety Report 10518398 (Version 1)
Quarter: 2014Q4

REPORT INFORMATION
  Report Type: Spontaneous
  Country: US (occurrence: None)
  Receive Date: 20141014
  Receipt Date: 20141014
  Transmission Date: 20150528
  Serious: No
  Sender: FDA-Public Use
  Company Number: None

PATIENT
  Age: 77 Year
  Sex: Female

DRUGS (1)
  1. REVLIMID [Suspect]
     Active Substance: LENALIDOMIDE
     Indication: DIFFUSE LARGE B-CELL LYMPHOMA
     Dosage: REVLIMIDE 10MG Q48H X21 D/28D ORALLY
     Route: 048
     Dates: start: 20140915

REACTIONS (1)
  - Constipation [None]

NARRATIVE: CASE EVENT DATE: 20141008
